FAERS Safety Report 11327705 (Version 2)
Quarter: 2015Q3

REPORT INFORMATION
  Report Type: Spontaneous
  Country: CH (occurrence: CH)
  Receive Date: 20150731
  Receipt Date: 20150810
  Transmission Date: 20151125
  Serious: Yes (Other)
  Sender: FDA-Public Use
  Company Number: CH-009507513-1507CHE013476

PATIENT
  Age: 32 Year
  Sex: Female

DRUGS (4)
  1. AERIUS [Suspect]
     Active Substance: DESLORATADINE
     Dosage: AS NECESSARY
     Route: 048
     Dates: start: 2015
  2. ANDREAFOL [Concomitant]
     Dosage: 0.4 MG, ONCE DAILY
     Route: 048
  3. DOXYCYCLINE. [Suspect]
     Active Substance: DOXYCYCLINE
     Dosage: 100 MG, ONCE DAILY
     Route: 048
     Dates: start: 20150607, end: 20150612
  4. DOXYCYCLINE. [Suspect]
     Active Substance: DOXYCYCLINE
     Indication: UREAPLASMA INFECTION
     Dosage: THE FIRST DAY, 200 MG PER DAY
     Route: 048
     Dates: start: 20150606, end: 20150606

REACTIONS (2)
  - Abortion spontaneous [Recovered/Resolved]
  - Exposure during pregnancy [Recovered/Resolved]

NARRATIVE: CASE EVENT DATE: 20150526
